FAERS Safety Report 22299633 (Version 1)
Quarter: 2023Q2

REPORT INFORMATION
  Report Type: Spontaneous
  Country: US (occurrence: None)
  Receive Date: 20230508
  Receipt Date: 20230508
  Transmission Date: 20230721
  Serious: Yes (Hospitalization)
  Sender: FDA-Public Use
  Company Number: None

PATIENT
  Sex: Female

DRUGS (28)
  1. MYCOPHENOLIC ACID [Suspect]
     Active Substance: MYCOPHENOLIC ACID
     Indication: Renal transplant
     Dosage: 360 MG ORAL??TAKE 1 TABLET BY MOUTH 2 TIMES A DAY.  DO NOT CRUSH OR SPLIT.  GIVE ON AN EMPTY STOMACH
     Route: 048
     Dates: start: 20171014
  2. ALBUTEROL AER HFA [Concomitant]
  3. ALPRAZOLAM TAB [Concomitant]
  4. CEVIMELINE CAP [Concomitant]
  5. FLUTICASONE SPR [Concomitant]
  6. GAMUNEX-C [Concomitant]
     Active Substance: HUMAN IMMUNOGLOBULIN G
  7. HALOBETASOL CRE [Concomitant]
  8. HYDROXYCHLOR TAB [Concomitant]
  9. LEVETIRACETA TAB [Concomitant]
  10. LOSARTAN POTASSIUM [Concomitant]
     Active Substance: LOSARTAN POTASSIUM
  11. METOPROL SUC [Concomitant]
  12. MOMETASON SPR [Concomitant]
  13. DEXAMETHASONE\NEOMYCIN\POLYMYXIN B SULFATE [Concomitant]
     Active Substance: DEXAMETHASONE\NEOMYCIN\POLYMYXIN B SULFATE
  14. NICOTINE TD DIS [Concomitant]
  15. OXYCODONE AND ACETAMINOPHEN [Concomitant]
     Active Substance: ACETAMINOPHEN\OXYCODONE HYDROCHLORIDE
  16. PREDNISOLE SUS [Concomitant]
  17. PREDNISONE [Concomitant]
  18. PREDNISONE [Concomitant]
     Active Substance: PREDNISONE
  19. PREGABALIN [Concomitant]
     Active Substance: PREGABALIN
  20. SERTRALINE [Concomitant]
  21. TACROLIMUS [Concomitant]
  22. TACROLIMUS [Concomitant]
     Active Substance: TACROLIMUS
  23. TACROLIMUS [Concomitant]
     Active Substance: TACROLIMUS
  24. TACROLIMUS [Concomitant]
     Active Substance: TACROLIMUS
  25. TACROLIMUS [Concomitant]
     Active Substance: TACROLIMUS
  26. TACROLIMUS [Concomitant]
     Active Substance: TACROLIMUS
  27. XIIDRA DRO [Concomitant]
  28. ZOLPIDEM TAB [Concomitant]

REACTIONS (1)
  - Hospitalisation [None]
